FAERS Safety Report 5565079-2 (Version None)
Quarter: 2007Q4

REPORT INFORMATION
  Report Type: 
  Country: None (occurrence: None)
  Receive Date: 20071218
  Receipt Date: 20070723
  Transmission Date: 20080405
  Serious: Yes (Hospitalization, Other)
  Sender: FDA-Public Use
  Company Number: US-ASTRAZENECA-2006UW03025

PATIENT
  Age: 20 Year
  Sex: Female
  Weight: 118.2 kg

DRUGS (16)
  1. SEROQUEL [Suspect]
     Indication: ANXIETY
     Dosage: 100 MG TO 600 MG
     Route: 048
     Dates: start: 20030101, end: 20060101
  2. SEROQUEL [Suspect]
     Indication: DEPRESSION
     Dosage: 100 MG TO 600 MG
     Route: 048
     Dates: start: 20030101, end: 20060101
  3. SEROQUEL [Suspect]
     Indication: BIPOLAR DISORDER
     Dosage: 100 MG TO 600 MG
     Route: 048
     Dates: start: 20030101, end: 20060101
  4. EFFEXOR [Concomitant]
  5. TOPAMAX [Concomitant]
  6. TRILEPTAL [Concomitant]
  7. EPIDRIN [Concomitant]
  8. LEXAPRO [Concomitant]
  9. AUGMENTIN '250' [Concomitant]
  10. MINOCYCLINE HCL [Concomitant]
  11. BENZACLIN [Concomitant]
  12. WELLBUTRIN [Concomitant]
  13. CLARINEX [Concomitant]
  14. PROPRANOLOL [Concomitant]
  15. LORATADINE [Concomitant]
  16. VALIUM [Concomitant]

REACTIONS (9)
  - BLOOD PRESSURE INCREASED [None]
  - CONVULSION [None]
  - DIABETES MELLITUS [None]
  - EUSTACHIAN TUBE DYSFUNCTION [None]
  - HEART RATE INCREASED [None]
  - HOMICIDAL IDEATION [None]
  - PRURITUS [None]
  - SUICIDAL IDEATION [None]
  - WEIGHT INCREASED [None]
